FAERS Safety Report 6269675-9 (Version None)
Quarter: 2009Q3

REPORT INFORMATION
  Report Type: 
  Country: None (occurrence: None)
  Receive Date: 20090716
  Receipt Date: 20090708
  Transmission Date: 20100115
  Serious: Yes (Other)
  Sender: FDA-Public Use
  Company Number: CH-BIOGENIDEC-2009BI020942

PATIENT
  Age: 42 Year
  Sex: Male

DRUGS (17)
  1. TYSABRI [Suspect]
     Indication: MULTIPLE SCLEROSIS
     Route: 042
     Dates: start: 20080306, end: 20081112
  2. TYSABRI [Suspect]
     Route: 042
     Dates: start: 20090306
  3. TEGRETOL [Concomitant]
     Indication: POLYNEUROPATHY
     Route: 048
  4. SINTROM [Concomitant]
     Indication: CONGENITAL COAGULOPATHY
     Route: 048
     Dates: start: 20030101
  5. TAVEGYL [Concomitant]
     Indication: PREMEDICATION
     Dates: start: 20080306, end: 20080306
  6. TAVEGYL [Concomitant]
     Dates: start: 20080403, end: 20080403
  7. TAVEGYL [Concomitant]
     Dates: start: 20080430, end: 20080430
  8. TAVEGYL [Concomitant]
     Dates: start: 20080801
  9. TAVEGYL [Concomitant]
     Dates: start: 20090306, end: 20090306
  10. TAVEGYL [Concomitant]
     Dates: start: 20090403, end: 20090403
  11. TAVEGYL [Concomitant]
     Dates: start: 20090501, end: 20090501
  12. ACETAMINOPHEN [Concomitant]
     Indication: PREMEDICATION
     Dates: start: 20080306, end: 20080306
  13. ACETAMINOPHEN [Concomitant]
     Dates: start: 20080403, end: 20080403
  14. ACETAMINOPHEN [Concomitant]
     Dates: start: 20080430, end: 20080430
  15. PRIMPERAN [Concomitant]
     Indication: PREMEDICATION
     Dates: start: 20080306, end: 20080306
  16. PRIMPERAN [Concomitant]
     Dates: start: 20080403, end: 20080403
  17. PRIMPERAN [Concomitant]
     Dates: start: 20080430, end: 20080430

REACTIONS (4)
  - DERMATITIS PSORIASIFORM [None]
  - GAMMA-GLUTAMYLTRANSFERASE INCREASED [None]
  - OEDEMA PERIPHERAL [None]
  - PRURITUS [None]
